FAERS Safety Report 10049173 (Version 1)
Quarter: 2014Q2

REPORT INFORMATION
  Report Type: Spontaneous
  Country: ZA (occurrence: ZA)
  Receive Date: 20140401
  Receipt Date: 20140401
  Transmission Date: 20141212
  Serious: Yes (Hospitalization)
  Sender: FDA-Public Use
  Company Number: ZA-ROCHE-1371248

PATIENT
  Sex: Female
  Weight: 77 kg

DRUGS (6)
  1. HERCEPTIN [Suspect]
     Indication: BREAST CANCER
     Route: 042
  2. HERCEPTIN [Suspect]
     Route: 042
     Dates: start: 20140317
  3. FEMARA [Concomitant]
     Route: 065
  4. ECOTRIN [Concomitant]
     Dosage: ONE DAILY
     Route: 065
  5. PURESIS [Concomitant]
     Route: 065
  6. SPIRONOLACTONE [Concomitant]

REACTIONS (4)
  - Diarrhoea [Recovered/Resolved]
  - Colitis [Recovered/Resolved]
  - Dehydration [Recovered/Resolved]
  - Atrial fibrillation [Recovered/Resolved]
